FAERS Safety Report 14040306 (Version 3)
Quarter: 2017Q4

REPORT INFORMATION
  Report Type: Report from Study
  Country: US (occurrence: US)
  Receive Date: 20171004
  Receipt Date: 20171218
  Transmission Date: 20180321
  Serious: Yes (Hospitalization)
  Sender: FDA-Public Use
  Company Number: US-ACTELION-A-US2017-160240

PATIENT
  Age: 57 Year
  Sex: Female

DRUGS (1)
  1. OPSUMIT [Suspect]
     Active Substance: MACITENTAN
     Indication: PULMONARY ARTERIAL HYPERTENSION
     Dosage: 10 MG, QD
     Route: 048
     Dates: start: 20170830, end: 20171116

REACTIONS (4)
  - Epistaxis [Unknown]
  - Renal disorder [Unknown]
  - Confusional state [Not Recovered/Not Resolved]
  - Cardiac disorder [Unknown]

NARRATIVE: CASE EVENT DATE: 201710
